FAERS Safety Report 7070147-2 (Version None)
Quarter: 2010Q4

REPORT INFORMATION
  Report Type: 
  Country: None (occurrence: None)
  Receive Date: 20101028
  Receipt Date: 20100824
  Transmission Date: 20110411
  Serious: No
  Sender: FDA-Public Use
  Company Number: US-WYE-H17165910

PATIENT
  Sex: Female
  Weight: 76.27 kg

DRUGS (5)
  1. PANTOPRAZOLE [Suspect]
     Indication: GASTROOESOPHAGEAL REFLUX DISEASE
     Dates: start: 20080101, end: 20080101
  2. MULTI-VITAMINS [Concomitant]
  3. LUTEIN [Concomitant]
  4. MICARDIS [Concomitant]
  5. DEMADEX [Concomitant]

REACTIONS (2)
  - COUGH [None]
  - DRUG INEFFECTIVE [None]
